FAERS Safety Report 14790093 (Version 1)
Quarter: 2018Q2

REPORT INFORMATION
  Report Type: Spontaneous
  Country: US (occurrence: US)
  Receive Date: 20180413
  Receipt Date: 20180413
  Transmission Date: 20180711
  Serious: No
  Sender: FDA-Public Use
  Company Number: None

PATIENT
  Age: 57 Year
  Sex: Female
  Weight: 83.25 kg

DRUGS (7)
  1. AMITRIPTYLINE [Concomitant]
     Active Substance: AMITRIPTYLINE
  2. LORAZEPAM. [Concomitant]
     Active Substance: LORAZEPAM
  3. BELSOMRA [Concomitant]
     Active Substance: SUVOREXANT
  4. DEXTROAMPHET SACCHARAT, AMPHET ASPARTATE, DEXTROAMPHET SULFATE AND AMPHET SULFAT [Suspect]
     Active Substance: AMPHETAMINE ASPARTATE\AMPHETAMINE SULFATE\DEXTROAMPHETAMINE SACCHARATE\DEXTROAMPHETAMINE SULFATE
     Indication: ATTENTION DEFICIT/HYPERACTIVITY DISORDER
     Dosage: ?          QUANTITY:1 CAPSULE(S);?
     Route: 048
     Dates: start: 20180403, end: 20180413
  5. MIRTAZAPINE. [Concomitant]
     Active Substance: MIRTAZAPINE
  6. DULOXETINE. [Concomitant]
     Active Substance: DULOXETINE
  7. TOPIRAMATE. [Concomitant]
     Active Substance: TOPIRAMATE

REACTIONS (5)
  - Migraine [None]
  - Depression [None]
  - Product substitution issue [None]
  - Nausea [None]
  - Fear [None]

NARRATIVE: CASE EVENT DATE: 20180411
